FAERS Safety Report 17052679 (Version 2)
Quarter: 2020Q1

REPORT INFORMATION
  Report Type: Report from Study
  Country: CA (occurrence: CA)
  Receive Date: 20191120
  Receipt Date: 20200103
  Transmission Date: 20200409
  Serious: Yes (Hospitalization)
  Sender: FDA-Public Use
  Company Number: CA-EISAI MEDICAL RESEARCH-EC-2016-022377

PATIENT
  Age: 81 Year
  Sex: Female

DRUGS (10)
  1. TEVA-ALENDRONATE [Concomitant]
     Active Substance: ALENDRONATE SODIUM
  2. ATORVASTATIN [Concomitant]
     Active Substance: ATORVASTATIN
  3. ATIVAN [Concomitant]
     Active Substance: LORAZEPAM
  4. LENVIMA [Suspect]
     Active Substance: LENVATINIB
     Indication: THYROID CANCER
     Route: 048
     Dates: start: 20161014, end: 201611
  5. LENVIMA [Suspect]
     Active Substance: LENVATINIB
     Route: 048
     Dates: start: 201611, end: 20170601
  6. LENVIMA [Suspect]
     Active Substance: LENVATINIB
     Route: 048
     Dates: start: 20170605, end: 201911
  7. BISOPROLOL [Concomitant]
     Active Substance: BISOPROLOL
  8. CALCIUM [Concomitant]
     Active Substance: CALCIUM
  9. SYNTHROID [Concomitant]
     Active Substance: LEVOTHYROXINE SODIUM
  10. LEVAPINE [Concomitant]

REACTIONS (13)
  - Mouth ulceration [Not Recovered/Not Resolved]
  - Oral pain [Unknown]
  - Diarrhoea [Unknown]
  - Blood pressure increased [Recovering/Resolving]
  - Pain in extremity [Unknown]
  - Weight decreased [Unknown]
  - Decreased appetite [Recovering/Resolving]
  - Chapped lips [Unknown]
  - Asthenia [Unknown]
  - Oedema peripheral [Unknown]
  - Skin exfoliation [Not Recovered/Not Resolved]
  - Gingival pain [Unknown]
  - Fatigue [Unknown]

NARRATIVE: CASE EVENT DATE: 201611
